FAERS Safety Report 26100937 (Version 2)
Quarter: 2025Q4

REPORT INFORMATION
  Report Type: Spontaneous
  Country: US (occurrence: US)
  Receive Date: 20251128
  Receipt Date: 20251205
  Transmission Date: 20260117
  Serious: No
  Sender: Haleon PLC
  Company Number: US-HALEON-2275079

PATIENT

DRUGS (1)
  1. ADVIL [Suspect]
     Active Substance: IBUPROFEN
     Indication: Headache

REACTIONS (1)
  - Drug effect less than expected [Unknown]
